FAERS Safety Report 5999319-2 (Version None)
Quarter: 2008Q4

REPORT INFORMATION
  Report Type: 
  Country: None (occurrence: None)
  Receive Date: 20081215
  Receipt Date: 20081210
  Transmission Date: 20090506
  Serious: Yes (Other)
  Sender: FDA-Public Use
  Company Number: BG-BRISTOL-MYERS SQUIBB COMPANY-14369805

PATIENT
  Age: 55 Year
  Sex: Female

DRUGS (1)
  1. SPRYCEL [Suspect]
     Indication: CHRONIC MYELOID LEUKAEMIA
     Dosage: LAST DOSE ON: 23-OCT-2008.RESTARTED ON 11NOV08 + INTERRUPTED FOR 7 DAYS;AGAIN RESUMED ON 23NOV08
     Route: 048
     Dates: start: 20080807, end: 20081023

REACTIONS (4)
  - BLOOD GLUCOSE INCREASED [None]
  - CANDIDIASIS [None]
  - DRUG INTERACTION [None]
  - PYREXIA [None]
